FAERS Safety Report 10688062 (Version 1)
Quarter: 2014Q4

REPORT INFORMATION
  Report Type: Spontaneous
  Country: US (occurrence: None)
  Receive Date: 20141231
  Receipt Date: 20141231
  Transmission Date: 20150529
  Serious: No
  Sender: FDA-Public Use
  Company Number: None

PATIENT
  Age: 9 Year
  Sex: Male
  Weight: 27.22 kg

DRUGS (1)
  1. METHYLPHENIDATE HYDROCHLORIDE EX 36 MG MALLINCKRODT [Suspect]
     Active Substance: METHYLPHENIDATE HYDROCHLORIDE
     Indication: ATTENTION DEFICIT/HYPERACTIVITY DISORDER
     Dosage: 1 PILL
     Route: 048
     Dates: start: 20141219, end: 20141230

REACTIONS (11)
  - Drug ineffective [None]
  - Homicidal ideation [None]
  - Product substitution issue [None]
  - Aggression [None]
  - Affect lability [None]
  - Violence-related symptom [None]
  - Insomnia [None]
  - Drug effect decreased [None]
  - Energy increased [None]
  - Drug effect variable [None]
  - Psychomotor hyperactivity [None]

NARRATIVE: CASE EVENT DATE: 20141224
